FAERS Safety Report 8076166-1 (Version None)
Quarter: 2012Q1

REPORT INFORMATION
  Report Type: 
  Country: None (occurrence: None)
  Receive Date: 20120127
  Receipt Date: 20120125
  Transmission Date: 20120608
  Serious: Yes (Death, Hospitalization)
  Sender: FDA-Public Use
  Company Number: CA-B.I. PHARMACEUTICALS,INC./RIDGEFIELD-2012-CN-00130CN

PATIENT
  Age: 76 Year
  Sex: Female

DRUGS (4)
  1. PRADAXA [Suspect]
     Indication: ATRIAL FIBRILLATION
     Dosage: 220 MG
  2. NUMEROUS DIABETIC MEDS [Concomitant]
     Indication: DIABETES MELLITUS
  3. NUMEROUS OTHER CARDIAC MEDS [Concomitant]
     Indication: CARDIAC DISORDER
  4. DIGOXIN [Concomitant]
     Indication: CARDIAC DISORDER

REACTIONS (1)
  - RENAL FAILURE ACUTE [None]
